FAERS Safety Report 17470683 (Version 1)
Quarter: 2020Q1

REPORT INFORMATION
  Report Type: Spontaneous
  Country: US (occurrence: US)
  Receive Date: 20200227
  Receipt Date: 20200227
  Transmission Date: 20200409
  Serious: Yes (Other)
  Sender: FDA-Public Use
  Company Number: US-FRESENIUS MEDICAL CARE RENAL THERAPIES GROUP-FMC-2002-000235

PATIENT
  Sex: Male

DRUGS (18)
  1. DELFLEX WITH DEXTROSE 4.25% LOW MAGNESIUM LOW CALCIUM [Suspect]
     Active Substance: CALCIUM CHLORIDE\DEXTROSE\MAGNESIUM CHLORIDE\SODIUM CHLORIDE\SODIUM LACTATE
     Indication: END STAGE RENAL DISEASE
     Dosage: FILL VOLUME = 2300 ML, 3 EXCHANGES, NO LAST FILL, NO DAYTIME EXCHANGE
     Route: 033
  2. HYDRALAZINE [Concomitant]
     Active Substance: HYDRALAZINE HYDROCHLORIDE
  3. BUMEX [Concomitant]
     Active Substance: BUMETANIDE
  4. LEVOTHYROXINE. [Concomitant]
     Active Substance: LEVOTHYROXINE
  5. SPIRIVA [Concomitant]
     Active Substance: TIOTROPIUM BROMIDE MONOHYDRATE
  6. METOPROLOL. [Concomitant]
     Active Substance: METOPROLOL
  7. VELPHORO [Concomitant]
     Active Substance: FERRIC OXYHYDROXIDE
  8. DELFLEX WITH DEXTROSE 2.5% LOW MAGNESIUM LOW CALCIUM [Suspect]
     Active Substance: CALCIUM CHLORIDE\DEXTROSE\MAGNESIUM CHLORIDE\SODIUM CHLORIDE\SODIUM LACTATE
     Indication: END STAGE RENAL DISEASE
     Dosage: FILL VOLUME = 2300 ML, 3 EXCHANGES, NO LAST FILL, NO DAYTIME EXCHANGE
     Route: 033
  9. CALCITRIOL. [Concomitant]
     Active Substance: CALCITRIOL
  10. TEMAZEPAM. [Concomitant]
     Active Substance: TEMAZEPAM
  11. TERAZOSIN [Concomitant]
     Active Substance: TERAZOSIN HYDROCHLORIDE
  12. ISOSORBIDE. [Concomitant]
     Active Substance: ISOSORBIDE
  13. DELFLEX WITH DEXTROSE 1.5% LOW MAGNESIUM LOW CALCIUM [Suspect]
     Active Substance: CALCIUM CHLORIDE\DEXTROSE\MAGNESIUM CHLORIDE\SODIUM CHLORIDE\SODIUM LACTATE
     Indication: END STAGE RENAL DISEASE
     Dosage: FILL VOLUME = 2300 ML, 3 EXCHANGES, NO LAST FILL, NO DAYTIME EXCHANGE
     Route: 033
  14. ALLOPURINOL. [Concomitant]
     Active Substance: ALLOPURINOL
  15. ALBUTEROL. [Concomitant]
     Active Substance: ALBUTEROL
  16. ZOFRAN [Concomitant]
     Active Substance: ONDANSETRON HYDROCHLORIDE
  17. ASPIRIN. [Concomitant]
     Active Substance: ASPIRIN
  18. VITAMIN D [Concomitant]
     Active Substance: VITAMIN D NOS

REACTIONS (1)
  - Peritonitis bacterial [Recovering/Resolving]
